FAERS Safety Report 9077576 (Version 1)
Quarter: 2013Q1

REPORT INFORMATION
  Report Type: Report from Study
  Country: US (occurrence: US)
  Receive Date: 20130130
  Receipt Date: 20130130
  Transmission Date: 20140127
  Serious: No
  Sender: FDA-Public Use
  Company Number: US-ABBOTT-12P-163-0951557-00

PATIENT
  Age: 38 Year
  Sex: Female

DRUGS (5)
  1. HUMIRA 40 MG/0.8 ML PEN [Suspect]
     Indication: CROHN^S DISEASE
     Dosage: LOADING DOSE
     Dates: start: 20120620, end: 20120620
  2. HUMIRA 40 MG/0.8 ML PEN [Suspect]
     Dosage: INTERRUPTED
     Dates: start: 20120704, end: 20120704
  3. PENTASA [Concomitant]
     Indication: PRODUCT USED FOR UNKNOWN INDICATION
  4. TYLENOL [Concomitant]
     Indication: BACK PAIN
  5. AMBIEN [Concomitant]
     Indication: INSOMNIA

REACTIONS (10)
  - Vulvovaginal pruritus [Recovered/Resolved]
  - Vulvovaginal burning sensation [Recovered/Resolved]
  - Vaginal discharge [Recovered/Resolved]
  - Vulvovaginal pruritus [Recovered/Resolved]
  - Vulvovaginal burning sensation [Recovered/Resolved]
  - Vaginal discharge [Recovered/Resolved]
  - Vaginitis bacterial [Recovered/Resolved]
  - Vaginal infection [Recovered/Resolved]
  - Vaginal infection [Recovered/Resolved]
  - Dyspepsia [Recovered/Resolved]
